FAERS Safety Report 23302368 (Version 1)
Quarter: 2023Q4

REPORT INFORMATION
  Report Type: Spontaneous
  Country: US (occurrence: None)
  Receive Date: 20231214
  Receipt Date: 20231214
  Transmission Date: 20240109
  Serious: Yes (Hospitalization)
  Sender: FDA-Public Use
  Company Number: None

PATIENT
  Age: 43 Year
  Sex: Female

DRUGS (1)
  1. CEFTRIAXONE SODIUM [Suspect]
     Active Substance: CEFTRIAXONE SODIUM
     Dosage: 500 MG ONCE IM?
     Route: 030
     Dates: start: 20231104, end: 20231104

REACTIONS (3)
  - Angioedema [None]
  - Paraesthesia oral [None]
  - Tongue oedema [None]

NARRATIVE: CASE EVENT DATE: 20231104
